FAERS Safety Report 11775255 (Version 4)
Quarter: 2018Q2

REPORT INFORMATION
  Report Type: Spontaneous
  Country: KR (occurrence: KR)
  Receive Date: 20151124
  Receipt Date: 20180629
  Transmission Date: 20180711
  Serious: Yes (Other)
  Sender: FDA-Public Use
  Company Number: KR-JNJFOC-20151119460

PATIENT

DRUGS (3)
  1. AZATHIOPRINE. [Suspect]
     Active Substance: AZATHIOPRINE
     Indication: CROHN^S DISEASE
     Route: 065
  2. INFLIXIMAB, RECOMBINANT [Suspect]
     Active Substance: INFLIXIMAB
     Indication: CROHN^S DISEASE
     Route: 042
  3. MESALAZINE [Suspect]
     Active Substance: MESALAMINE
     Indication: CROHN^S DISEASE
     Route: 065

REACTIONS (11)
  - Immunosuppressant drug level increased [Unknown]
  - Leukopenia [Unknown]
  - Nausea [Unknown]
  - Gastrointestinal disorder [Unknown]
  - Rash [Unknown]
  - Vomiting [Unknown]
  - Therapeutic response decreased [Unknown]
  - Alopecia [Unknown]
  - Hepatic enzyme increased [Unknown]
  - Pancreatitis [Unknown]
  - Drug specific antibody [Unknown]
